FAERS Safety Report 6715657-X (Version None)
Quarter: 2010Q2

REPORT INFORMATION
  Report Type: 
  Country: None (occurrence: None)
  Receive Date: 20100507
  Receipt Date: 20100426
  Transmission Date: 20101027
  Serious: Yes (Hospitalization)
  Sender: FDA-Public Use
  Company Number: BR-ROCHE-699769

PATIENT
  Sex: Female
  Weight: 46 kg

DRUGS (7)
  1. METHOXY POLYETHYLENE GLYCOL-EPOETIN BETA [Suspect]
     Dosage: FORM: AMPULE, DATE OF LAST DOSE PRIOR TO SAE 04 MARCH 2010
     Route: 058
     Dates: start: 20091210
  2. CLONIDINE [Concomitant]
     Dates: start: 20100321
  3. FUROSEMIDE [Concomitant]
     Dates: start: 20100321
  4. AMLODIPINE [Concomitant]
     Dates: start: 20100128
  5. ASPIRIN [Concomitant]
     Dates: start: 20050101
  6. SIMVASTATIN [Concomitant]
     Dates: start: 20050101
  7. INSULIN [Concomitant]
     Dosage: TDD: 2 U
     Dates: start: 20100321, end: 20100323

REACTIONS (1)
  - PNEUMONIA [None]
